FAERS Safety Report 5669055-0 (Version None)
Quarter: 2008Q1

REPORT INFORMATION
  Report Type: 
  Country: None (occurrence: None)
  Receive Date: 20080317
  Receipt Date: 20080310
  Transmission Date: 20080703
  Serious: Yes (Disabling, Other)
  Sender: FDA-Public Use
  Company Number: IE-ABBOTT-08P-229-0437352-00

PATIENT
  Age: 51 Year
  Sex: Female
  Weight: 108.05 kg

DRUGS (2)
  1. REDUCTIL [Suspect]
     Indication: OBESITY
     Route: 048
     Dates: start: 20070124, end: 20070214
  2. DICLOFENAC SR [Concomitant]
     Indication: MYALGIA
     Route: 048
     Dates: start: 20070101, end: 20070126

REACTIONS (2)
  - DEPRESSION [None]
  - SUICIDAL IDEATION [None]
